FAERS Safety Report 19192760 (Version 1)
Quarter: 2021Q2

REPORT INFORMATION
  Report Type: Spontaneous
  Country: US (occurrence: US)
  Receive Date: 20210428
  Receipt Date: 20210428
  Transmission Date: 20210717
  Serious: No
  Sender: FDA-Public Use
  Company Number: US-PERRIGO-20US009256

PATIENT
  Age: 55 Year
  Sex: Female
  Weight: 61.22 kg

DRUGS (3)
  1. ACIPHEX [Concomitant]
     Active Substance: RABEPRAZOLE SODIUM
     Indication: HIATUS HERNIA
     Dosage: UNK
     Route: 065
  2. SULFACETAMIDE SODIUM. [Suspect]
     Active Substance: SULFACETAMIDE SODIUM
     Dosage: SMALL AMOUNT, SINGLE IN AM
     Route: 061
     Dates: start: 20200604, end: 20200604
  3. SULFACETAMIDE SODIUM. [Suspect]
     Active Substance: SULFACETAMIDE SODIUM
     Indication: ACNE
     Dosage: SMALL AMOUNT, SINGLE AT HS
     Route: 061
     Dates: start: 20200603, end: 20200603

REACTIONS (4)
  - Application site pruritus [Recovered/Resolved]
  - Application site rash [Recovered/Resolved]
  - Application site irritation [Recovered/Resolved]
  - Drug ineffective [Unknown]

NARRATIVE: CASE EVENT DATE: 20200603
